FAERS Safety Report 25949142 (Version 2)
Quarter: 2025Q4

REPORT INFORMATION
  Report Type: Spontaneous
  Country: CN (occurrence: CN)
  Receive Date: 20251022
  Receipt Date: 20251030
  Transmission Date: 20260118
  Serious: Yes (Other)
  Sender: NOVO NORDISK
  Company Number: CN-NOVOPROD-1540696

PATIENT
  Age: 44 Year
  Sex: Male
  Weight: 92 kg

DRUGS (2)
  1. NOVOLIN R [Suspect]
     Active Substance: INSULIN HUMAN
     Indication: Type 1 diabetes mellitus
     Dosage: 30 IU, BID (30 U EACH MORNING AND EVENING)
  2. ADALAT [Concomitant]
     Active Substance: NIFEDIPINE
     Indication: Hypertension
     Dosage: UNK, BID (ONE TABLET IN THE MORNING AND ONE IN THE EVENING)

REACTIONS (2)
  - Retinal haemorrhage [Unknown]
  - Hypertension [Unknown]
